FAERS Safety Report 8166583-3 (Version None)
Quarter: 2012Q1

REPORT INFORMATION
  Report Type: 
  Country: None (occurrence: None)
  Receive Date: 20120227
  Receipt Date: 20120220
  Transmission Date: 20120608
  Serious: Yes (Other)
  Sender: FDA-Public Use
  Company Number: BE-B.I. PHARMACEUTICALS,INC./RIDGEFIELD-2012-BL-00124BL

PATIENT
  Sex: Female
  Weight: 60 kg

DRUGS (9)
  1. ELTHYRONE [Concomitant]
     Dosage: 100 MCG
  2. ZOCOR [Concomitant]
     Dosage: 40 MG
  3. LOSARTAN POTASSIUM [Concomitant]
     Dosage: 100 MG
  4. GLUCOPHAGE [Concomitant]
     Dosage: 500 MG
  5. PROGYNOVA [Concomitant]
     Dates: end: 20110101
  6. FLECAINIDE ACETATE [Concomitant]
     Dates: end: 20110101
  7. PRADAXA [Suspect]
     Dates: end: 20111001
  8. INUVAIR [Concomitant]
  9. LASIX [Concomitant]
     Dosage: 40 MG

REACTIONS (1)
  - ACUTE MYOCARDIAL INFARCTION [None]
